FAERS Safety Report 9969284 (Version 1)
Quarter: 2014Q1

REPORT INFORMATION
  Report Type: Spontaneous
  Country: US (occurrence: US)
  Receive Date: 20140306
  Receipt Date: 20140306
  Transmission Date: 20141002
  Serious: No
  Sender: FDA-Public Use
  Company Number: US-BIOGENIDEC-2014BI018286

PATIENT
  Sex: Female

DRUGS (30)
  1. TECFIDERA [Suspect]
     Indication: MULTIPLE SCLEROSIS
     Route: 048
     Dates: start: 20140105
  2. TECFIDERA [Suspect]
     Indication: MULTIPLE SCLEROSIS
     Route: 048
     Dates: start: 201401
  3. CYMBALTA [Concomitant]
  4. CALTRATE + D [Concomitant]
  5. HYDROMORPHONE [Concomitant]
  6. LIPITOR [Concomitant]
  7. DONEPEZIL [Concomitant]
  8. METFORMIN [Concomitant]
  9. GABAPENTIN [Concomitant]
  10. HYDROCHLOROTHIAZIDE [Concomitant]
  11. TRIAMCINOLONE [Concomitant]
  12. DIAZEPAM [Concomitant]
  13. BACLOFEN [Concomitant]
  14. HYDRALAZINE [Concomitant]
  15. TIZANIDINE [Concomitant]
  16. NEXIUM [Concomitant]
  17. BABY ASPIRIN [Concomitant]
  18. CETAPHIL [Concomitant]
  19. PROTOPIC [Concomitant]
  20. DULCOLAX [Concomitant]
  21. METOPROLOL [Concomitant]
  22. AMPYRA [Concomitant]
  23. MAGNESIUM [Concomitant]
  24. NIACIN [Concomitant]
  25. TOPAMAX [Concomitant]
  26. ZETIA [Concomitant]
  27. WELCHOL [Concomitant]
  28. MS CONTIN [Concomitant]
  29. VITAMIN D [Concomitant]
  30. CARISPRODOL [Concomitant]

REACTIONS (2)
  - Depression [Unknown]
  - Nausea [Unknown]
